FAERS Safety Report 5031583-9 (Version None)
Quarter: 2006Q2

REPORT INFORMATION
  Report Type: 
  Country: None (occurrence: None)
  Receive Date: 20060621
  Receipt Date: 20060613
  Transmission Date: 20061013
  Serious: Yes (Other)
  Sender: FDA-Public Use
  Company Number: JP-JPN-A200602046

PATIENT
  Age: 55 Year
  Sex: Male

DRUGS (4)
  1. PAXIL [Suspect]
     Indication: DEPRESSION
     Dosage: 20MG PER DAY
     Route: 048
     Dates: start: 20060522, end: 20060605
  2. LENDORMIN [Concomitant]
     Route: 048
  3. BENZALIN [Concomitant]
     Route: 048
  4. SULPIRIDE [Concomitant]
     Route: 048

REACTIONS (3)
  - ANXIETY [None]
  - INSOMNIA [None]
  - MOOD ALTERED [None]
